FAERS Safety Report 5595344-4 (Version None)
Quarter: 2008Q1

REPORT INFORMATION
  Report Type: 
  Country: None (occurrence: None)
  Receive Date: 20080117
  Receipt Date: 20080111
  Transmission Date: 20080703
  Serious: Yes (Other)
  Sender: FDA-Public Use
  Company Number: US-PFIZER INC-2008003742

PATIENT
  Sex: Male

DRUGS (6)
  1. QUINAPRIL HCL [Suspect]
  2. HYDROCHLOROTHIAZIDE [Suspect]
  3. TOPROL-XL [Suspect]
  4. CIALIS [Concomitant]
  5. LOTRISONE [Concomitant]
  6. ALBUTEROL [Concomitant]

REACTIONS (3)
  - BLOOD PRESSURE DECREASED [None]
  - HEART RATE DECREASED [None]
  - HYPERTENSION [None]
